FAERS Safety Report 15766713 (Version 1)
Quarter: 2018Q4

REPORT INFORMATION
  Report Type: Spontaneous
  Country: US (occurrence: US)
  Receive Date: 20181227
  Receipt Date: 20181227
  Transmission Date: 20190205
  Serious: Yes (Hospitalization, Other)
  Sender: FDA-Public Use
  Company Number: US-SAKK-2018SA343285AA

PATIENT
  Age: 39 Year
  Sex: Female

DRUGS (2)
  1. ALEMTUZUMAB [Suspect]
     Active Substance: ALEMTUZUMAB
     Indication: RELAPSING-REMITTING MULTIPLE SCLEROSIS
     Route: 041
  2. CORTICOTROPIN [Concomitant]
     Active Substance: CORTICOTROPIN
     Indication: PREMEDICATION
     Dosage: 80 UNITS

REACTIONS (14)
  - Nausea [Unknown]
  - Vomiting [Unknown]
  - Haemolytic anaemia [Recovering/Resolving]
  - Tenderness [Recovered/Resolved]
  - Renal cortical necrosis [Recovering/Resolving]
  - Thrombocytopenia [Recovered/Resolved]
  - Thrombotic microangiopathy [Recovering/Resolving]
  - Rash [Unknown]
  - Abdominal pain upper [Recovered/Resolved]
  - Petechiae [Unknown]
  - Respiratory failure [Unknown]
  - Acute kidney injury [Recovering/Resolving]
  - Hypervolaemia [Unknown]
  - Interstitial lung disease [Unknown]
